FAERS Safety Report 4752575-0 (Version None)
Quarter: 2005Q3

REPORT INFORMATION
  Report Type: 
  Country: None (occurrence: None)
  Receive Date: 20050824
  Receipt Date: 20050810
  Transmission Date: 20060218
  Serious: Yes (Hospitalization, Other)
  Sender: FDA-Public Use
  Company Number: US_010870784

PATIENT
  Age: 13 Year
  Sex: Female

DRUGS (2)
  1. HUMATROPE [Suspect]
     Indication: GROWTH HORMONE DEFICIENCY
     Dosage: 2 MG/1 DAY
     Dates: start: 20010508
  2. HUMATROPE [Suspect]
     Indication: TURNER'S SYNDROME
     Dosage: 2 MG/1 DAY
     Dates: start: 20010508

REACTIONS (6)
  - ANOREXIA [None]
  - BULIMIA NERVOSA [None]
  - DEVICE FAILURE [None]
  - INJECTION SITE HAEMORRHAGE [None]
  - INJECTION SITE PAIN [None]
  - PHARMACEUTICAL PRODUCT COMPLAINT [None]
